FAERS Safety Report 10563034 (Version 1)
Quarter: 2014Q4

REPORT INFORMATION
  Report Type: Spontaneous
  Country: US (occurrence: None)
  Receive Date: 20141103
  Receipt Date: 20141103
  Transmission Date: 20150529
  Serious: Yes (Hospitalization)
  Sender: FDA-Public Use
  Company Number: None

PATIENT
  Age: 90 Year
  Sex: Male
  Weight: 74.39 kg

DRUGS (1)
  1. ELIQUIS [Suspect]
     Active Substance: APIXABAN
     Indication: ATRIAL FIBRILLATION
     Dosage: 1 PILL TWICE DAILY TAKEN BY MOUTH
     Route: 048
     Dates: start: 20140911, end: 20141006

REACTIONS (9)
  - Oedema peripheral [None]
  - Hypophagia [None]
  - Pericardial effusion [None]
  - Pneumonia [None]
  - Ileus [None]
  - Pericardial haemorrhage [None]
  - Sepsis [None]
  - Asthenia [None]
  - Weight increased [None]

NARRATIVE: CASE EVENT DATE: 20141006
